FAERS Safety Report 16191844 (Version 1)
Quarter: 2019Q2

REPORT INFORMATION
  Report Type: Spontaneous
  Country: VN (occurrence: VN)
  Receive Date: 20190412
  Receipt Date: 20190412
  Transmission Date: 20190711
  Serious: Yes (Death, Life-Threatening)
  Sender: FDA-Public Use
  Company Number: VN-PFIZER INC-2019154009

PATIENT
  Sex: Female

DRUGS (3)
  1. ADRENALIN (EPINEPHRINE) [Suspect]
     Active Substance: EPINEPHRINE
     Dosage: 1MG/1ML
     Route: 030
  2. SOLU-MEDROL [Suspect]
     Active Substance: METHYLPREDNISOLONE SODIUM SUCCINATE
     Dosage: 40 MG, UNK (INFUSION)
     Route: 041
  3. ADRENALIN (EPINEPHRINE) [Suspect]
     Active Substance: EPINEPHRINE
     Dosage: 10 ML, UNK (INFUSION)
     Route: 041

REACTIONS (3)
  - Respiratory arrest [Fatal]
  - Cyanosis [Fatal]
  - Cardiac arrest [Fatal]
